FAERS Safety Report 13909756 (Version 3)
Quarter: 2017Q3

REPORT INFORMATION
  Report Type: Spontaneous
  Country: GB (occurrence: GB)
  Receive Date: 20170828
  Receipt Date: 20170908
  Transmission Date: 20171127
  Serious: Yes (Other)
  Sender: FDA-Public Use
  Company Number: GB-MYLANLABS-2016M1055988

PATIENT
  Age: 63 Year
  Sex: Female

DRUGS (1)
  1. CLOZARIL [Suspect]
     Active Substance: CLOZAPINE
     Indication: PRODUCT USED FOR UNKNOWN INDICATION
     Dosage: UNK
     Route: 048
     Dates: start: 20081203

REACTIONS (4)
  - Thrombocytopenia [Not Recovered/Not Resolved]
  - White blood cell count decreased [Recovering/Resolving]
  - Anaemia [Not Recovered/Not Resolved]
  - Full blood count abnormal [Unknown]

NARRATIVE: CASE EVENT DATE: 20161213
